FAERS Safety Report 7064535-8 (Version None)
Quarter: 2010Q4

REPORT INFORMATION
  Report Type: 
  Country: None (occurrence: None)
  Receive Date: 20101027
  Receipt Date: 20101014
  Transmission Date: 20110411
  Serious: Yes (Hospitalization)
  Sender: FDA-Public Use
  Company Number: US-ALEXION-A201001273

PATIENT
  Sex: Female

DRUGS (10)
  1. SOLIRIS [Suspect]
     Indication: PAROXYSMAL NOCTURNAL HAEMOGLOBINURIA
     Dosage: UNK
     Route: 042
     Dates: end: 20100923
  2. ATENOLOL [Concomitant]
     Indication: HYPERTENSION
     Dosage: 50 MG, QD
     Route: 048
  3. CALCIUM CARBONATE [Concomitant]
     Dosage: 650 MG, BID
     Route: 048
  4. DIOVAN                             /01319601/ [Concomitant]
     Indication: HYPERTENSION
     Dosage: UNK
     Route: 048
  5. FERROUS SULFATE [Concomitant]
     Dosage: 325 MG, BID
     Route: 048
  6. FOLIC ACID [Concomitant]
     Indication: PAROXYSMAL NOCTURNAL HAEMOGLOBINURIA
     Dosage: 1 MG, QD
     Route: 048
  7. HYDRODIURIL [Concomitant]
     Indication: BLOOD PRESSURE
     Dosage: 25 MG, QD
     Route: 048
  8. LEVOTHYROXINE [Concomitant]
     Indication: HYPOTHYROIDISM
     Dosage: 25 UG, QD
     Route: 048
  9. VITAMIN B12                        /00056201/ [Concomitant]
     Dosage: UNK
  10. ALBUTEROL [Concomitant]
     Dosage: UNK

REACTIONS (2)
  - PANCREAS INFECTION [None]
  - PNEUMONIA [None]
